FAERS Safety Report 16734411 (Version 1)
Quarter: 2019Q3

REPORT INFORMATION
  Report Type: Spontaneous
  Country: US (occurrence: US)
  Receive Date: 20190708
  Receipt Date: 20190708
  Transmission Date: 20191005
  Serious: Yes (Other)
  Sender: FDA-Public Use
  Company Number: None

PATIENT
  Age: 52 Year
  Sex: Female
  Weight: 119.84 kg

DRUGS (1)
  1. DEPAKOTE [Suspect]
     Active Substance: DIVALPROEX SODIUM
     Indication: BIPOLAR I DISORDER
     Dosage: 500  AM?500  PM BID PO
     Route: 048
     Dates: end: 20190707

REACTIONS (2)
  - Anticonvulsant drug level below therapeutic [None]
  - Product residue present [None]

NARRATIVE: CASE EVENT DATE: 20190705
